FAERS Safety Report 11348097 (Version 3)
Quarter: 2017Q1

REPORT INFORMATION
  Report Type: Report from Study
  Country: DE (occurrence: DE)
  Receive Date: 20150806
  Receipt Date: 20170207
  Transmission Date: 20170428
  Serious: Yes (Other)
  Sender: FDA-Public Use
  Company Number: DE-UCBSA-2015024598

PATIENT
  Sex: Female

DRUGS (15)
  1. METHOTREXATE. [Concomitant]
     Active Substance: METHOTREXATE
     Dosage: DOSE: 20 MG
     Dates: start: 201010, end: 2012
  2. METHOTREXATE. [Concomitant]
     Active Substance: METHOTREXATE
     Dosage: 22.5 MG, WEEKLY (QW)
  3. HCQ [Concomitant]
     Active Substance: HYDROXYCHLOROQUINE SULFATE
     Indication: RHEUMATOID ARTHRITIS
     Dosage: UNK
     Dates: start: 201311, end: 201312
  4. PROPOFOL. [Concomitant]
     Active Substance: PROPOFOL
     Indication: OXYGEN SUPPLEMENTATION
     Dosage: 300 MG
     Dates: start: 20090302
  5. METRONIDAZOLE. [Concomitant]
     Active Substance: METRONIDAZOLE
     Indication: PRODUCT USED FOR UNKNOWN INDICATION
     Dosage: 400/D, 2X/DAY (BID)
  6. METHOTREXATE. [Concomitant]
     Active Substance: METHOTREXATE
     Dosage: DOSE: 20 MG
     Dates: start: 2014
  7. PROPOFOL. [Concomitant]
     Active Substance: PROPOFOL
     Dosage: 400 MG
     Dates: start: 20150331
  8. NACL [Concomitant]
     Active Substance: SODIUM CHLORIDE
     Indication: OXYGEN SUPPLEMENTATION
     Dosage: 250 ML NACL FOR KEEPING THE PASSAGE OPEN
     Dates: start: 20090302
  9. CIPROFLOXACIN. [Concomitant]
     Active Substance: CIPROFLOXACIN
     Indication: PRODUCT USED FOR UNKNOWN INDICATION
     Dosage: 500/D, 2X/DAY (BID)
  10. NACL [Concomitant]
     Active Substance: SODIUM CHLORIDE
     Dosage: 250 ML NACL FOR KEEPING OPEN
     Dates: start: 20150331
  11. NEXIUM [Concomitant]
     Active Substance: ESOMEPRAZOLE MAGNESIUM
     Indication: GASTROOESOPHAGEAL REFLUX DISEASE
     Dosage: ,40/D, 2X/DAY (BID)
  12. BUSCOPAN [Concomitant]
     Active Substance: BUTYLSCOPOLAMINE BROMIDE
     Indication: OXYGEN SUPPLEMENTATION
     Dosage: 20 MG
     Dates: start: 20150331
  13. METHOTREXATE. [Concomitant]
     Active Substance: METHOTREXATE
     Indication: RHEUMATOID ARTHRITIS
     Dosage: UNK
     Dates: start: 200702
  14. METHOTREXATE. [Concomitant]
     Active Substance: METHOTREXATE
     Dosage: DOSE 25 MG
     Dates: start: 2012, end: 2014
  15. CERTOLIZUMAB PEGOL RA [Suspect]
     Active Substance: CERTOLIZUMAB PEGOL
     Indication: RHEUMATOID ARTHRITIS
     Dosage: DOSE: 200 MG
     Dates: start: 201212, end: 201501

REACTIONS (2)
  - Diverticulitis [Not Recovered/Not Resolved]
  - Influenza like illness [Unknown]

NARRATIVE: CASE EVENT DATE: 20150331
